FAERS Safety Report 11564596 (Version 1)
Quarter: 2015Q3

REPORT INFORMATION
  Report Type: Spontaneous
  Country: US (occurrence: US)
  Receive Date: 20150916
  Receipt Date: 20150916
  Transmission Date: 20151125
  Serious: No
  Sender: FDA-Public Use
  Company Number: US-ELI_LILLY_AND_COMPANY-US200903006023

PATIENT
  Sex: Female

DRUGS (3)
  1. VITAMIN D                          /00107901/ [Concomitant]
     Active Substance: ERGOCALCIFEROL
     Dosage: 3400 U, UNK
  2. FORTEO [Suspect]
     Active Substance: TERIPARATIDE
     Indication: OSTEOPOROSIS
     Dosage: UNK, UNK
     Dates: start: 20090129
  3. CALCIUM                                 /N/A/ [Concomitant]
     Dosage: 2100 U, DAILY (1/D)

REACTIONS (5)
  - Memory impairment [Unknown]
  - Nervousness [Unknown]
  - Tremor [Unknown]
  - Hallucination [Unknown]
  - Pain [Unknown]
